FAERS Safety Report 20878008 (Version 1)
Quarter: 2022Q2

REPORT INFORMATION
  Report Type: Spontaneous
  Country: HR (occurrence: HR)
  Receive Date: 20220526
  Receipt Date: 20220526
  Transmission Date: 20220721
  Serious: Yes (Other)
  Sender: FDA-Public Use
  Company Number: None

PATIENT
  Sex: Female

DRUGS (2)
  1. XANAX [Suspect]
     Active Substance: ALPRAZOLAM
     Dosage: 20 MG, 1X/DAY
     Route: 048
     Dates: start: 20220412, end: 20220412
  2. NORMABEL [Suspect]
     Active Substance: DIAZEPAM
     Dosage: 400 MG, 1X/DAY
     Route: 048
     Dates: start: 20220412, end: 20220412

REACTIONS (3)
  - Intentional overdose [Unknown]
  - Suicide attempt [Unknown]
  - Somnolence [Unknown]

NARRATIVE: CASE EVENT DATE: 20220412
